FAERS Safety Report 13573693 (Version 1)
Quarter: 2017Q2

REPORT INFORMATION
  Report Type: Spontaneous
  Country: VN (occurrence: VN)
  Receive Date: 20170523
  Receipt Date: 20170523
  Transmission Date: 20170830
  Serious: Yes (Hospitalization, Other)
  Sender: FDA-Public Use
  Company Number: VN-ABBVIE-17P-179-1981555-00

PATIENT
  Age: 37 Year
  Sex: Male
  Weight: 56 kg

DRUGS (3)
  1. CHIROCAINE [Suspect]
     Active Substance: LEVOBUPIVACAINE HYDROCHLORIDE
     Indication: PROCEDURAL PAIN
     Dosage: 5MG/HOUR
     Route: 008
  2. SOLU-MEDROL [Concomitant]
     Active Substance: METHYLPREDNISOLONE SODIUM SUCCINATE
     Indication: OSTEOARTHRITIS
  3. CHIROCAINE [Suspect]
     Active Substance: LEVOBUPIVACAINE HYDROCHLORIDE
     Indication: GENERAL ANAESTHESIA
     Route: 037

REACTIONS (3)
  - Nerve injury [Recovering/Resolving]
  - Monoplegia [Recovering/Resolving]
  - Sensory loss [Recovering/Resolving]

NARRATIVE: CASE EVENT DATE: 20170506
